FAERS Safety Report 4795843-9 (Version None)
Quarter: 2005Q4

REPORT INFORMATION
  Report Type: 
  Country: None (occurrence: None)
  Receive Date: 20051012
  Receipt Date: 20050915
  Transmission Date: 20060501
  Serious: Yes (Life-Threatening, Hospitalization)
  Sender: FDA-Public Use
  Company Number: 200512668JP

PATIENT
  Age: 57 Year
  Sex: Female
  Weight: 56 kg

DRUGS (2)
  1. KETEK [Suspect]
     Indication: NASOPHARYNGITIS
     Dosage: DOSE: 1 TABLET/DAY
     Route: 048
     Dates: start: 20050829, end: 20050829
  2. CLARITHROMYCIN [Suspect]
     Indication: NASOPHARYNGITIS
     Dosage: DOSE: 2 TABLETS/DAY
     Route: 048
     Dates: start: 20050821, end: 20050824

REACTIONS (1)
  - DISSEMINATED INTRAVASCULAR COAGULATION [None]
